FAERS Safety Report 4865222-4 (Version None)
Quarter: 2005Q4

REPORT INFORMATION
  Report Type: 
  Country: None (occurrence: None)
  Receive Date: 20051223
  Receipt Date: 20051220
  Transmission Date: 20060501
  Serious: Yes (Death, Life-Threatening)
  Sender: FDA-Public Use
  Company Number: FR-GLAXOSMITHKLINE-B0404239A

PATIENT
  Age: 48 Year
  Sex: Male
  Weight: 122 kg

DRUGS (5)
  1. AVANDIA [Suspect]
     Indication: DIABETES MELLITUS NON-INSULIN-DEPENDENT
     Dosage: 8MG PER DAY
     Route: 048
     Dates: start: 20041201, end: 20050215
  2. LOPERAMIDE [Suspect]
     Dosage: 2UNIT PER DAY
     Route: 048
     Dates: start: 20030101, end: 20050215
  3. FENOFIBRATE [Suspect]
     Dosage: 1UNIT PER DAY
     Route: 048
     Dates: start: 20000101, end: 20050215
  4. DIAMICRON [Suspect]
     Dosage: 30MG PER DAY
     Route: 048
     Dates: start: 20010101, end: 20050215
  5. TAREG [Concomitant]
     Indication: HYPERTENSION
     Dosage: 80MG PER DAY
     Route: 048

REACTIONS (5)
  - CARDIAC ARREST [None]
  - CHEST PAIN [None]
  - OEDEMA PERIPHERAL [None]
  - POST PROCEDURAL OEDEMA [None]
  - PULMONARY EMBOLISM [None]
